FAERS Safety Report 6525091-3 (Version None)
Quarter: 2010Q1

REPORT INFORMATION
  Report Type: 
  Country: None (occurrence: None)
  Receive Date: 20100104
  Receipt Date: 20091229
  Transmission Date: 20100710
  Serious: Yes (Hospitalization)
  Sender: FDA-Public Use
  Company Number: JP-ROCHE-661134

PATIENT
  Sex: Male
  Weight: 66 kg

DRUGS (8)
  1. AVASTIN [Suspect]
     Indication: COLON CANCER METASTATIC
     Route: 041
     Dates: start: 20090220
  2. IRINOTECAN HCL [Concomitant]
     Route: 041
     Dates: start: 20081212, end: 20081212
  3. IRINOTECAN HCL [Concomitant]
     Route: 041
     Dates: start: 20081226
  4. FLUOROURACIL [Concomitant]
     Dosage: ROUTE: INTRAVENOUS BOLUS
     Route: 042
     Dates: start: 20081212
  5. FLUOROURACIL [Concomitant]
     Dosage: ROUTE: INTRAVENOUS DRIP
     Route: 042
     Dates: start: 20081212
  6. CALCIUM LEVOFOLINATE [Concomitant]
     Route: 041
     Dates: start: 20081212
  7. NASEA [Concomitant]
     Route: 041
     Dates: start: 20081212
  8. DECADRON [Concomitant]
     Route: 041
     Dates: start: 20081212

REACTIONS (3)
  - ILEUS [None]
  - OESOPHAGEAL ULCER [None]
  - PNEUMONIA ASPIRATION [None]
